FAERS Safety Report 8933030 (Version 1)
Quarter: 2012Q4

REPORT INFORMATION
  Report Type: 
  Country: TR (occurrence: TR)
  Receive Date: 20121129
  Receipt Date: 20121129
  Transmission Date: 20130627
  Serious: Yes (Death, Other)
  Sender: FDA-Public Use
  Company Number: TR-BAYER-2012-121445

PATIENT
  Age: 58 Year
  Sex: Female
  Weight: 72 kg

DRUGS (1)
  1. INTERFERON BETA - 1B [Suspect]
     Indication: MS
     Dosage: 8 miu, UNK

REACTIONS (3)
  - Death [Fatal]
  - Coma [None]
  - Unevaluable event [None]
